FAERS Safety Report 4679827-7 (Version None)
Quarter: 2005Q2

REPORT INFORMATION
  Report Type: 
  Country: None (occurrence: None)
  Receive Date: 20050602
  Receipt Date: 20041020
  Transmission Date: 20051028
  Serious: No
  Sender: FDA-Public Use
  Company Number: US-GLAXOSMITHKLINE-A0530632A

PATIENT
  Age: 38 Year
  Sex: Male

DRUGS (6)
  1. AUGMENTIN [Suspect]
     Indication: EAR INFECTION
     Dosage: 1000MG TWICE PER DAY
     Route: 048
  2. PAXIL [Suspect]
     Indication: DEPRESSION
     Dosage: 20MG PER DAY
     Route: 048
  3. AUGMENTIN XR [Concomitant]
     Route: 065
  4. AMOXICILLIN [Concomitant]
  5. ZYRTEC [Concomitant]
  6. BIRTH CONTROL PILL [Concomitant]
     Route: 048

REACTIONS (2)
  - EAR PAIN [None]
  - TINNITUS [None]
